FAERS Safety Report 17296873 (Version 1)
Quarter: 2020Q1

REPORT INFORMATION
  Report Type: Spontaneous
  Country: CN (occurrence: CN)
  Receive Date: 20200122
  Receipt Date: 20200122
  Transmission Date: 20200409
  Serious: Yes (Other)
  Sender: FDA-Public Use
  Company Number: CN-ACS-001616

PATIENT
  Age: 53 Year
  Sex: Male

DRUGS (6)
  1. AMOXICILLIN SULBACTAM [Suspect]
     Active Substance: AMOXICILLIN\SULBACTAM
     Dosage: 3.0
     Route: 042
     Dates: start: 20180619, end: 20180621
  2. CEFOPERAZONE SULBACTAM [Suspect]
     Active Substance: CEFOPERAZONE\SULBACTAM
     Dosage: SUBSEQUENTLY 3.0 Q8H FROM 04/09/2018 TO 07/09/2018
     Route: 042
     Dates: start: 20180621, end: 20180627
  3. IMIPENEM AND CILASTATIN [Suspect]
     Active Substance: CILASTATIN SODIUM\IMIPENEM
     Route: 042
     Dates: start: 20180724
  4. CEFTIZOXIME [Suspect]
     Active Substance: CEFTIZOXIME
     Dosage: 2.0
     Route: 042
     Dates: start: 20180719, end: 20180723
  5. AZTREONAM. [Suspect]
     Active Substance: AZTREONAM
     Route: 042
     Dates: start: 20180701
  6. AMOXICILLIN. [Suspect]
     Active Substance: AMOXICILLIN
     Indication: LIMB INJURY
     Route: 048
     Dates: start: 201805

REACTIONS (1)
  - Interstitial lung disease [Recovering/Resolving]

NARRATIVE: CASE EVENT DATE: 201806
